FAERS Safety Report 6145643-2 (Version None)
Quarter: 2009Q2

REPORT INFORMATION
  Report Type: 
  Country: None (occurrence: None)
  Receive Date: 20090407
  Receipt Date: 20090326
  Transmission Date: 20091009
  Serious: Yes (Other)
  Sender: FDA-Public Use
  Company Number: AU-WYE-G03404509

PATIENT
  Sex: Female

DRUGS (3)
  1. PRISTIQ [Suspect]
     Indication: DEPRESSION
     Dates: start: 20090305
  2. OLIVE OIL [Concomitant]
  3. SELENIUM [Concomitant]

REACTIONS (4)
  - DEEP VEIN THROMBOSIS [None]
  - FORMICATION [None]
  - HEADACHE [None]
  - INSOMNIA [None]
